FAERS Safety Report 4597029-X (Version None)
Quarter: 2005Q1

REPORT INFORMATION
  Report Type: 
  Country: None (occurrence: None)
  Receive Date: 20050301
  Receipt Date: 20050225
  Transmission Date: 20050727
  Serious: Yes (Hospitalization)
  Sender: FDA-Public Use
  Company Number: 05-02-0292

PATIENT
  Age: 55 Year
  Sex: Female

DRUGS (1)
  1. CLOZAPINE [Suspect]
     Indication: SCHIZOPHRENIA
     Dosage: 300-600MG QD ORAL
     Route: 048
     Dates: start: 20000601

REACTIONS (4)
  - ANKLE FRACTURE [None]
  - FALL [None]
  - PLEURAL EFFUSION [None]
  - PULMONARY OEDEMA [None]
